FAERS Safety Report 8187125 (Version 4)
Quarter: 2017Q3

REPORT INFORMATION
  Report Type: Spontaneous
  Country: US (occurrence: US)
  Receive Date: 20111018
  Receipt Date: 20170908
  Transmission Date: 20171128
  Serious: No
  Sender: FDA-Public Use
  Company Number: US-ASTRAZENECA-2010SE51314

PATIENT
  Age: 78 Year
  Sex: Female

DRUGS (4)
  1. METOPROLOL SUCCINATE. [Suspect]
     Active Substance: METOPROLOL SUCCINATE
     Dosage: 50.0MG UNKNOWN
     Route: 048
  2. SYMBICORT [Suspect]
     Active Substance: BUDESONIDE\FORMOTEROL FUMARATE DIHYDRATE
     Indication: ASTHMA
     Dosage: UNKNOWN DOSE; UNKNOWN FREQUENCY UNKNOWN
     Route: 055
  3. ATENOLOL. [Suspect]
     Active Substance: ATENOLOL
     Dosage: 25.0MG UNKNOWN
     Route: 065
  4. CARVEDILOL. [Concomitant]
     Active Substance: CARVEDILOL

REACTIONS (13)
  - Upper-airway cough syndrome [Unknown]
  - Malaise [Unknown]
  - Diarrhoea [Unknown]
  - Nausea [Unknown]
  - Hypothyroidism [Unknown]
  - Dizziness [Unknown]
  - Cardiomyopathy [Unknown]
  - Nasal discomfort [Unknown]
  - Hypoacusis [Unknown]
  - Asthma [Unknown]
  - Throat irritation [Unknown]
  - Gait disturbance [Unknown]
  - Atrial fibrillation [Unknown]
